FAERS Safety Report 14349780 (Version 1)
Quarter: 2018Q1

REPORT INFORMATION
  Report Type: Spontaneous
  Country: DE (occurrence: DE)
  Receive Date: 20180104
  Receipt Date: 20180104
  Transmission Date: 20180509
  Serious: Yes (Other)
  Sender: FDA-Public Use
  Company Number: PHHY2017DE196956

PATIENT
  Sex: Female
  Weight: 50 kg

DRUGS (4)
  1. ZYKADIA [Suspect]
     Active Substance: CERITINIB
     Dosage: 450 MG, QD
     Route: 065
     Dates: start: 2014, end: 201606
  2. ZYKADIA [Suspect]
     Active Substance: CERITINIB
     Dosage: 5 DF, QD
     Route: 065
     Dates: end: 201701
  3. ZYKADIA [Suspect]
     Active Substance: CERITINIB
     Indication: NON-SMALL CELL LUNG CANCER
     Dosage: 750 MG, QD
     Route: 065
     Dates: start: 20140715
  4. ZYKADIA [Suspect]
     Active Substance: CERITINIB
     Dosage: 750 MG, QD
     Route: 065

REACTIONS (8)
  - Abdominal pain upper [Unknown]
  - Malignant neoplasm progression [Unknown]
  - Pneumonia [Unknown]
  - Gastrointestinal disorder [Unknown]
  - Non-small cell lung cancer [Unknown]
  - Abdominal discomfort [Unknown]
  - Sepsis [Unknown]
  - Diarrhoea [Unknown]

NARRATIVE: CASE EVENT DATE: 2014
